FAERS Safety Report 24825078 (Version 1)
Quarter: 2025Q1

REPORT INFORMATION
  Report Type: Spontaneous
  Country: US (occurrence: None)
  Receive Date: 20250108
  Receipt Date: 20250108
  Transmission Date: 20250409
  Serious: Yes (Other)
  Sender: FDA-CTU
  Company Number: None

PATIENT
  Age: 60 Year
  Sex: Female
  Weight: 59.53 kg

DRUGS (4)
  1. OLANZAPINE [Suspect]
     Active Substance: OLANZAPINE
     Indication: Psychotic disorder
     Dosage: FREQUENCY : AT BEDTIME;?
     Route: 048
  2. PHENYTOIN [Suspect]
     Active Substance: PHENYTOIN
  3. HALOPERIDOL [Concomitant]
     Active Substance: HALOPERIDOL
  4. SPIRONOLACTONE [Concomitant]
     Active Substance: SPIRONOLACTONE

REACTIONS (3)
  - Liver injury [None]
  - Blood urea increased [None]
  - Therapy interrupted [None]

NARRATIVE: CASE EVENT DATE: 20241029
